FAERS Safety Report 10369154 (Version 1)
Quarter: 2014Q3

REPORT INFORMATION
  Report Type: Other
  Country: IR (occurrence: IR)
  Receive Date: 20140807
  Receipt Date: 20140807
  Transmission Date: 20150326
  Serious: Yes (Death, Other)
  Sender: FDA-Public Use
  Company Number: IR-ENDO PHARMACEUTICALS INC-RISP20140011

PATIENT
  Age: 38 Year
  Sex: Female

DRUGS (4)
  1. RISPERIDONE TABLETS [Suspect]
     Active Substance: RISPERIDONE
     Indication: DEPRESSION
     Route: 048
  2. RISPERIDONE TABLETS [Suspect]
     Active Substance: RISPERIDONE
     Indication: BIPOLAR I DISORDER
  3. BIPERIDEN [Concomitant]
     Active Substance: BIPERIDEN
     Indication: DEPRESSION
     Route: 065
  4. BIPERIDEN [Concomitant]
     Active Substance: BIPERIDEN
     Indication: BIPOLAR I DISORDER

REACTIONS (2)
  - Cardiac arrest [Fatal]
  - Deep vein thrombosis [Not Recovered/Not Resolved]

NARRATIVE: CASE EVENT DATE: 2012
